FAERS Safety Report 7298017-5 (Version None)
Quarter: 2011Q1

REPORT INFORMATION
  Report Type: 
  Country: None (occurrence: None)
  Receive Date: 20110217
  Receipt Date: 20110209
  Transmission Date: 20110831
  Serious: No
  Sender: FDA-Public Use
  Company Number: US-PFIZER INC-2010136897

PATIENT
  Sex: Male

DRUGS (2)
  1. SERTRALINE HYDROCHLORIDE [Suspect]
     Dosage: UNK
     Dates: end: 20100101
  2. PRISTIQ [Suspect]
     Dosage: UNK
     Dates: start: 20101017

REACTIONS (2)
  - DECREASED APPETITE [None]
  - WEIGHT DECREASED [None]
